FAERS Safety Report 8235467-4 (Version None)
Quarter: 2012Q1

REPORT INFORMATION
  Report Type: 
  Country: None (occurrence: None)
  Receive Date: 20120307
  Receipt Date: 20090811
  Transmission Date: 20120608
  Serious: Yes (Other)
  Sender: FDA-Public Use
  Company Number: PHEH2009US09221

PATIENT
  Sex: Male

DRUGS (3)
  1. AFINITOR [Suspect]
     Indication: RENAL CELL CARCINOMA
     Dosage: 10 MG, QD, 5 MG, QD, 5 MG, QOD
     Dates: start: 20090608, end: 20090731
  2. AFINITOR [Suspect]
     Indication: RENAL CELL CARCINOMA
     Dosage: 10 MG, QD, 5 MG, QD, 5 MG, QOD
     Dates: start: 20090101, end: 20090607
  3. AFINITOR [Suspect]
     Indication: RENAL CELL CARCINOMA
     Dosage: 10 MG, QD, 5 MG, QD, 5 MG, QOD
     Dates: start: 20090812

REACTIONS (1)
  - LARGE INTESTINAL HAEMORRHAGE [None]
